FAERS Safety Report 4295886-8 (Version None)
Quarter: 2004Q1

REPORT INFORMATION
  Report Type: 
  Country: None (occurrence: None)
  Receive Date: 20040216
  Receipt Date: 20031201
  Transmission Date: 20041129
  Serious: No
  Sender: FDA-Public Use
  Company Number: US-GLAXOSMITHKLINE-A0441486A

PATIENT
  Age: 43 Year
  Sex: Female

DRUGS (4)
  1. LAMICTAL [Suspect]
     Indication: BIPOLAR DISORDER
     Dosage: 150MG TWICE PER DAY
     Route: 048
     Dates: start: 20030501
  2. CELEXA [Concomitant]
  3. WELLBUTRIN [Concomitant]
  4. TETRACYCLINE [Concomitant]
     Indication: RASH

REACTIONS (1)
  - GINGIVAL RECESSION [None]
